FAERS Safety Report 12143597 (Version 1)
Quarter: 2016Q1

REPORT INFORMATION
  Report Type: Other
  Country: CN (occurrence: CN)
  Receive Date: 20160304
  Receipt Date: 20160304
  Transmission Date: 20160526
  Serious: No
  Sender: FDA-Public Use
  Company Number: CN-LUPIN PHARMACEUTICALS INC.-2015-04477

PATIENT
  Age: 87 Year
  Sex: Female

DRUGS (9)
  1. RIFAMPIN. [Suspect]
     Active Substance: RIFAMPIN
     Dosage: 0.3 GM
     Route: 048
  2. WARFARIN [Suspect]
     Active Substance: WARFARIN
     Indication: ANTICOAGULANT THERAPY
     Route: 048
  3. WARFARIN [Suspect]
     Active Substance: WARFARIN
     Dosage: 12 MG
     Route: 048
  4. RIFAMPIN. [Suspect]
     Active Substance: RIFAMPIN
     Indication: TUBERCULOUS PLEURISY
     Route: 048
  5. HEPARIN [Concomitant]
     Active Substance: HEPARIN SODIUM
     Indication: ANTICOAGULANT THERAPY
     Route: 065
  6. WARFARIN [Suspect]
     Active Substance: WARFARIN
     Dosage: 7.5 MG
     Route: 048
  7. ETHAMBUTOL [Concomitant]
     Active Substance: ETHAMBUTOL HYDROCHLORIDE
     Indication: TUBERCULOUS PLEURISY
     Route: 065
  8. WARFARIN [Suspect]
     Active Substance: WARFARIN
     Dosage: 4.5 MG
     Route: 048
  9. ISONIAZID. [Concomitant]
     Active Substance: ISONIAZID
     Indication: TUBERCULOUS PLEURISY
     Route: 065

REACTIONS (2)
  - Drug interaction [Unknown]
  - International normalised ratio decreased [Unknown]
